FAERS Safety Report 23733814 (Version 2)
Quarter: 2024Q2

REPORT INFORMATION
  Report Type: Spontaneous
  Country: US (occurrence: US)
  Receive Date: 20240412
  Receipt Date: 20240508
  Transmission Date: 20240715
  Serious: No
  Sender: FDA-Public Use
  Company Number: US-AMGEN-USASP2024060421

PATIENT
  Sex: Male
  Weight: 114.31 kg

DRUGS (1)
  1. NEULASTA [Suspect]
     Active Substance: PEGFILGRASTIM
     Indication: White blood cell count decreased
     Dosage: UNK
     Route: 065

REACTIONS (3)
  - Product communication issue [Unknown]
  - Device issue [Unknown]
  - Device use error [Unknown]

NARRATIVE: CASE EVENT DATE: 20240223
